FAERS Safety Report 5711815-1 (Version None)
Quarter: 2008Q2

REPORT INFORMATION
  Report Type: 
  Country: None (occurrence: None)
  Receive Date: 20080421
  Receipt Date: 20080410
  Transmission Date: 20081010
  Serious: Yes (Life-Threatening, Hospitalization)
  Sender: FDA-Public Use
  Company Number: ES-PFIZER INC-2008031564

PATIENT
  Age: 79 Year
  Sex: Female

DRUGS (7)
  1. ALDACTONE [Suspect]
     Indication: HYPERTENSION
     Route: 048
  2. CARDYL [Suspect]
     Indication: HYPERLIPIDAEMIA
     Route: 048
  3. IRBESARTAN [Suspect]
     Indication: HYPERTENSION
     Route: 048
  4. AVANDIA [Suspect]
     Indication: DIABETES MELLITUS
     Route: 048
  5. NOVONORM [Suspect]
     Indication: DIABETES MELLITUS
     Route: 048
  6. DIGOXIN ^LIADE^ [Suspect]
     Indication: ATRIAL FIBRILLATION
     Route: 048
  7. SUTRIL [Suspect]
     Indication: HYPERTENSION
     Dosage: DAILY DOSE:10MG
     Route: 048

REACTIONS (1)
  - PANCREATITIS ACUTE [None]
